FAERS Safety Report 20530865 (Version 1)
Quarter: 2022Q1

REPORT INFORMATION
  Report Type: Spontaneous
  Country: US (occurrence: US)
  Receive Date: 20220301
  Receipt Date: 20220301
  Transmission Date: 20220423
  Serious: No
  Sender: FDA-Public Use
  Company Number: US-IGSA-BIG0013617

PATIENT
  Age: 72 Year
  Sex: Female
  Weight: 114 kg

DRUGS (18)
  1. PROLASTIN-C LIQUID [Suspect]
     Active Substance: .ALPHA.1-PROTEINASE INHIBITOR HUMAN
     Indication: Alpha-1 antitrypsin deficiency
     Dosage: 6840 MILLIGRAM, Q.WK.
     Route: 042
     Dates: start: 20210224
  2. PROLASTIN-C LIQUID [Suspect]
     Active Substance: .ALPHA.1-PROTEINASE INHIBITOR HUMAN
     Dosage: 6840 MILLIGRAM, Q.WK.
     Route: 042
     Dates: start: 20180830
  3. VITAMIN D3 [Concomitant]
     Active Substance: CHOLECALCIFEROL
  4. TRAMADOL [Concomitant]
     Active Substance: TRAMADOL
  5. SPIRIVA [Concomitant]
     Active Substance: TIOTROPIUM BROMIDE MONOHYDRATE
  6. PROCARDIA [Concomitant]
     Active Substance: NIFEDIPINE
  7. PROAIR HFA [Concomitant]
     Active Substance: ALBUTEROL SULFATE
  8. NEXIUM [Concomitant]
     Active Substance: ESOMEPRAZOLE MAGNESIUM
  9. NAPROXEN [Concomitant]
     Active Substance: NAPROXEN
  10. MORPHINE [Concomitant]
     Active Substance: MORPHINE
  11. LIDODERM [Concomitant]
     Active Substance: LIDOCAINE
  12. LEXAPRO [Concomitant]
     Active Substance: ESCITALOPRAM OXALATE
  13. LASIX [Concomitant]
     Active Substance: FUROSEMIDE
  14. LANTUS [Concomitant]
     Active Substance: INSULIN GLARGINE
  15. GLUCOPHAGE [Concomitant]
     Active Substance: METFORMIN HYDROCHLORIDE
  16. COZAAR [Concomitant]
     Active Substance: LOSARTAN POTASSIUM
  17. AMBIEN CR [Concomitant]
     Active Substance: ZOLPIDEM TARTRATE
  18. ALBUTEROL SULFATE [Concomitant]
     Active Substance: ALBUTEROL SULFATE

REACTIONS (3)
  - Fatigue [Unknown]
  - Nausea [Unknown]
  - Somnolence [Unknown]

NARRATIVE: CASE EVENT DATE: 20210224
